FAERS Safety Report 5731921-5 (Version None)
Quarter: 2008Q2

REPORT INFORMATION
  Report Type: 
  Country: None (occurrence: None)
  Receive Date: 20080508
  Receipt Date: 20080506
  Transmission Date: 20081010
  Serious: Yes (Death)
  Sender: FDA-Public Use
  Company Number: US-GILEAD-2008-0016342

PATIENT
  Sex: Male

DRUGS (10)
  1. LETAIRIS [Suspect]
     Route: 048
     Dates: start: 20080408
  2. OXYCODONE HCL [Concomitant]
     Route: 065
  3. CIPROFLOXACIN [Concomitant]
     Route: 065
  4. POTASSIUM CHLORIDE [Concomitant]
     Route: 065
  5. PRAVASTATIN SODIUM [Concomitant]
     Route: 065
  6. FUROSEMIDE [Concomitant]
     Route: 065
  7. TEMAZEPAM [Concomitant]
     Route: 065
  8. KETOROLAC TROMETHAMINE [Concomitant]
     Route: 065
  9. POLYETHYLENE GLYCOL 1000 [Concomitant]
     Route: 065
  10. SOTAOLOL [Concomitant]
     Route: 065

REACTIONS (1)
  - DEATH [None]
